FAERS Safety Report 7611008 (Version 3)
Quarter: 2014Q1

REPORT INFORMATION
  Report Type: Spontaneous
  Country: US (occurrence: US)
  Receive Date: 20100929
  Receipt Date: 20140122
  Transmission Date: 20141002
  Serious: Yes (Other)
  Sender: FDA-Public Use
  Company Number: US-BAYER-201034595NA

PATIENT
  Age: 33 Year
  Sex: Female
  Weight: 95 kg

DRUGS (6)
  1. YASMIN [Suspect]
     Indication: PREMENSTRUAL SYNDROME
     Route: 048
     Dates: start: 2001, end: 200305
  2. YASMIN [Suspect]
     Indication: PREMENSTRUAL SYNDROME
     Route: 048
     Dates: start: 200803, end: 200809
  3. PHENTERMINE [Concomitant]
  4. SPIRONOLACTONE [Concomitant]
  5. HYDROCHLOROTHIAZIDE [Concomitant]
  6. SYMBICORT [Concomitant]

REACTIONS (4)
  - Gallbladder disorder [None]
  - Cholecystitis chronic [None]
  - Biliary dyskinesia [None]
  - Biliary colic [None]
